FAERS Safety Report 19995251 (Version 1)
Quarter: 2021Q4

REPORT INFORMATION
  Report Type: Spontaneous
  Country: US (occurrence: US)
  Receive Date: 20211026
  Receipt Date: 20211026
  Transmission Date: 20220303
  Serious: Yes (Hospitalization)
  Sender: FDA-Public Use
  Company Number: None

PATIENT
  Age: 36 Year
  Sex: Female
  Weight: 81.9 kg

DRUGS (3)
  1. OMEPRAZOLE [Suspect]
     Active Substance: OMEPRAZOLE
     Indication: Dyspepsia
     Dosage: ?          QUANTITY:1 CAPSULE(S);
     Route: 048
     Dates: start: 20210911, end: 20211026
  2. PROZAC [Suspect]
     Active Substance: FLUOXETINE HYDROCHLORIDE
  3. LITHIUM [Concomitant]
     Active Substance: LITHIUM

REACTIONS (8)
  - Serotonin syndrome [None]
  - Pruritus [None]
  - Nausea [None]
  - Urticaria [None]
  - Dysgeusia [None]
  - Nasal congestion [None]
  - Mouth swelling [None]
  - Tremor [None]

NARRATIVE: CASE EVENT DATE: 20211026
